FAERS Safety Report 10252537 (Version 1)
Quarter: 2014Q2

REPORT INFORMATION
  Report Type: Report from Study
  Country: RU (occurrence: RU)
  Receive Date: 20140623
  Receipt Date: 20140623
  Transmission Date: 20141212
  Serious: Yes (Death)
  Sender: FDA-Public Use
  Company Number: RU-ABBVIE-14K-251-1250177-00

PATIENT
  Age: 72 Year
  Sex: Male

DRUGS (2)
  1. LUCRIN DEPOT [Suspect]
     Indication: PROSTATE CANCER
     Dates: start: 20120214, end: 20130115
  2. LUCRIN DEPOT [Suspect]
     Dates: start: 20130210, end: 20130310

REACTIONS (1)
  - Disease progression [Fatal]
